FAERS Safety Report 14320859 (Version 4)
Quarter: 2018Q1

REPORT INFORMATION
  Report Type: Report from Study
  Country: None (occurrence: GB)
  Receive Date: 20171223
  Receipt Date: 20180201
  Transmission Date: 20180509
  Serious: Yes (Hospitalization, Disabling)
  Sender: FDA-Public Use
  Company Number: GB-ABBVIE-17K-167-2195077-00

PATIENT
  Sex: Female
  Weight: 115 kg

DRUGS (2)
  1. HUMIRA [Suspect]
     Active Substance: ADALIMUMAB
     Route: 058
     Dates: start: 201712
  2. HUMIRA [Suspect]
     Active Substance: ADALIMUMAB
     Indication: RHEUMATOID ARTHRITIS
     Route: 058
     Dates: start: 20171030, end: 20171211

REACTIONS (16)
  - Emotional distress [Not Recovered/Not Resolved]
  - Oedema peripheral [Not Recovered/Not Resolved]
  - Inappropriate schedule of drug administration [Unknown]
  - Back pain [Unknown]
  - Localised oedema [Not Recovered/Not Resolved]
  - Disability [Not Recovered/Not Resolved]
  - Drug dispensing error [Unknown]
  - Cardiac flutter [Not Recovered/Not Resolved]
  - Accidental overdose [Unknown]
  - Fatigue [Unknown]
  - Pain [Unknown]
  - Dyspnoea [Unknown]
  - Chest pain [Not Recovered/Not Resolved]
  - Cough [Unknown]
  - Flank pain [Unknown]
  - Adverse drug reaction [Not Recovered/Not Resolved]

NARRATIVE: CASE EVENT DATE: 2017
